FAERS Safety Report 6478434-3 (Version None)
Quarter: 2009Q4

REPORT INFORMATION
  Report Type: 
  Country: None (occurrence: None)
  Receive Date: 20091207
  Receipt Date: 20090216
  Transmission Date: 20100525
  Serious: No
  Sender: FDA-Public Use
  Company Number: US-AMGEN-KDL331151

PATIENT
  Sex: Female

DRUGS (1)
  1. ENBREL [Suspect]
     Indication: PSORIASIS
     Route: 058
     Dates: start: 20090128

REACTIONS (21)
  - APHONIA [None]
  - BRONCHITIS [None]
  - CONTUSION [None]
  - DIARRHOEA [None]
  - DRUG INEFFECTIVE [None]
  - DYSPHAGIA [None]
  - EAR CONGESTION [None]
  - FATIGUE [None]
  - FEELING ABNORMAL [None]
  - HEADACHE [None]
  - MUSCLE SPASMS [None]
  - MUSCLE TIGHTNESS [None]
  - NASAL CONGESTION [None]
  - OROPHARYNGEAL PAIN [None]
  - PAIN IN EXTREMITY [None]
  - PAIN IN JAW [None]
  - PHARYNGEAL OEDEMA [None]
  - SINUS CONGESTION [None]
  - THINKING ABNORMAL [None]
  - URINARY INCONTINENCE [None]
  - VOMITING [None]
